FAERS Safety Report 6728250-X (Version None)
Quarter: 2010Q2

REPORT INFORMATION
  Report Type: 
  Country: None (occurrence: None)
  Receive Date: 20100517
  Receipt Date: 20100506
  Transmission Date: 20101027
  Serious: Yes (Other)
  Sender: FDA-Public Use
  Company Number: US-JNJCH-2009020852

PATIENT
  Sex: Male

DRUGS (4)
  1. NEOSPORIN [Suspect]
     Indication: EXCORIATION
     Dosage: TEXT:UNSPECIFIED
     Route: 061
     Dates: start: 20090307, end: 20090730
  2. CONCERTA [Concomitant]
     Indication: ATTENTION DEFICIT/HYPERACTIVITY DISORDER
     Dosage: TEXT:UNSPECIFIED
     Route: 065
  3. RITALIN [Concomitant]
     Indication: ATTENTION DEFICIT/HYPERACTIVITY DISORDER
     Dosage: TEXT:UNSPECIFIED
     Route: 065
  4. FLUVOXAMINE MALEATE [Concomitant]
     Indication: DRUG USE FOR UNKNOWN INDICATION
     Dosage: TEXT:UNSPECIFIED
     Route: 065

REACTIONS (1)
  - ANAPHYLACTIC SHOCK [None]
